FAERS Safety Report 4864188-0 (Version None)
Quarter: 2005Q4

REPORT INFORMATION
  Report Type: 
  Country: None (occurrence: None)
  Receive Date: 20051219
  Receipt Date: 20051208
  Transmission Date: 20060501
  Serious: Yes (Hospitalization)
  Sender: FDA-Public Use
  Company Number: 2005-11-1675

PATIENT
  Age: 68 Year
  Sex: Female

DRUGS (6)
  1. INTRON A [Suspect]
     Indication: CARCINOID SYNDROME
     Dosage: SEE IMAGE
     Route: 058
     Dates: start: 20050101, end: 20050101
  2. INTRON A [Suspect]
     Indication: CARCINOID SYNDROME
     Dosage: SEE IMAGE
     Route: 058
     Dates: start: 20050103, end: 20050228
  3. INTRON A [Suspect]
     Indication: CARCINOID SYNDROME
     Dosage: SEE IMAGE
     Route: 058
     Dates: start: 20050301, end: 20050906
  4. SANDOSTATIN [Concomitant]
  5. LANZOR [Concomitant]
  6. GEANGIN [Concomitant]

REACTIONS (5)
  - INCORRECT DOSE ADMINISTERED [None]
  - PYELONEPHRITIS ACUTE [None]
  - PYELONEPHRITIS CHRONIC [None]
  - RENAL FAILURE [None]
  - RENAL TUBULAR DISORDER [None]
